FAERS Safety Report 5707250-2 (Version None)
Quarter: 2008Q2

REPORT INFORMATION
  Report Type: 
  Country: None (occurrence: None)
  Receive Date: 20080414
  Receipt Date: 20080414
  Transmission Date: 20081010
  Serious: Yes (Other)
  Sender: FDA-Public Use
  Company Number: None

PATIENT
  Age: 43 Year
  Sex: Female
  Weight: 55.7924 kg

DRUGS (1)
  1. GABAPENTIN [Suspect]
     Indication: FACIAL NEURALGIA
     Dosage: 100 MG 3 DALY PO
     Route: 048
     Dates: start: 20080410, end: 20080410

REACTIONS (5)
  - ATAXIA [None]
  - EUPHORIC MOOD [None]
  - FATIGUE [None]
  - MENTAL DISORDER [None]
  - VISION BLURRED [None]
